FAERS Safety Report 5956447-5 (Version None)
Quarter: 2008Q4

REPORT INFORMATION
  Report Type: 
  Country: None (occurrence: None)
  Receive Date: 20081118
  Receipt Date: 20081111
  Transmission Date: 20090506
  Serious: Yes (Hospitalization)
  Sender: FDA-Public Use
  Company Number: US-ELI_LILLY_AND_COMPANY-US200811002540

PATIENT
  Sex: Female

DRUGS (3)
  1. HUMALOG [Suspect]
  2. HUMALOG [Suspect]
     Indication: DIABETES MELLITUS
  3. HUMALOG [Suspect]
     Dates: start: 20081104

REACTIONS (4)
  - BLOOD GLUCOSE INCREASED [None]
  - DRUG DISPENSING ERROR [None]
  - VITAL FUNCTIONS ABNORMAL [None]
  - WRONG DRUG ADMINISTERED [None]
